FAERS Safety Report 5312438-9 (Version None)
Quarter: 2007Q2

REPORT INFORMATION
  Report Type: 
  Country: None (occurrence: None)
  Receive Date: 20070430
  Receipt Date: 20061121
  Transmission Date: 20071010
  Serious: No
  Sender: FDA-Public Use
  Company Number: 2006UW25814

PATIENT
  Age: 78 Year
  Sex: Female
  Weight: 72.6 kg

DRUGS (9)
  1. NEXIUM [Suspect]
     Indication: GASTRIC ULCER
     Route: 048
  2. NEXIUM [Suspect]
     Indication: HELICOBACTER INFECTION
     Route: 048
  3. DETROL [Concomitant]
  4. AVAPRO [Concomitant]
  5. ZIAC [Concomitant]
  6. CENTRUM SILVER [Concomitant]
  7. CALCIUM CHLORIDE [Concomitant]
  8. FOLIC ACID [Concomitant]
  9. PRESERVISION [Concomitant]

REACTIONS (2)
  - RED BLOOD CELLS URINE [None]
  - WHITE BLOOD CELLS URINE [None]
